FAERS Safety Report 9394263 (Version 2)
Quarter: 2013Q3

REPORT INFORMATION
  Report Type: Spontaneous
  Country: IE (occurrence: IE)
  Receive Date: 20130711
  Receipt Date: 20130718
  Transmission Date: 20140515
  Serious: Yes (Hospitalization, Other)
  Sender: FDA-Public Use
  Company Number: IE-AMGEN-IRLSP2013048040

PATIENT
  Age: 54 Year
  Sex: Female

DRUGS (4)
  1. PROLIA [Suspect]
     Indication: PRODUCT USED FOR UNKNOWN INDICATION
     Dosage: UNK
  2. BETA BLOCKING AGENTS [Concomitant]
  3. ANGIOTENSIN II ANTAGONISTS, OTHER COMBINATION [Concomitant]
  4. CALCIUM CHANNEL BLOCKERS [Concomitant]

REACTIONS (5)
  - Uveitis [Unknown]
  - Eye allergy [Unknown]
  - Strabismus [Unknown]
  - Visual acuity reduced [Unknown]
  - Ocular hyperaemia [Unknown]
